FAERS Safety Report 8545068-6 (Version None)
Quarter: 2012Q3

REPORT INFORMATION
  Report Type: 
  Country: None (occurrence: None)
  Receive Date: 20120727
  Receipt Date: 20120724
  Transmission Date: 20120928
  Serious: Yes (Other)
  Sender: FDA-Public Use
  Company Number: US-ROCHE-1092024

PATIENT
  Sex: Female

DRUGS (3)
  1. BONIVA [Suspect]
     Indication: OSTEOPOROSIS
     Dates: start: 20050601, end: 20100101
  2. FOSAMAX [Suspect]
     Indication: OSTEOPOROSIS
     Dates: start: 20050601, end: 20100101
  3. ACTONEL [Suspect]
     Indication: OSTEOPOROSIS
     Dates: start: 20050601, end: 20100101

REACTIONS (3)
  - EMOTIONAL DISTRESS [None]
  - FEMUR FRACTURE [None]
  - ANXIETY [None]
